FAERS Safety Report 11165492 (Version 1)
Quarter: 2015Q2

REPORT INFORMATION
  Report Type: Spontaneous
  Country: US (occurrence: US)
  Receive Date: 20150604
  Receipt Date: 20150604
  Transmission Date: 20150821
  Serious: Yes (Hospitalization, Other)
  Sender: FDA-Public Use
  Company Number: US-GLAXOSMITHKLINE-US2015076484

PATIENT
  Age: 71 Year
  Sex: Male

DRUGS (9)
  1. IRON PILL [Concomitant]
     Active Substance: IRON
  2. GLIMEPIRIDE. [Concomitant]
     Active Substance: GLIMEPIRIDE
  3. INSULIN [Concomitant]
     Active Substance: INSULIN NOS
  4. PROPAFENONE. [Concomitant]
     Active Substance: PROPAFENONE
  5. TRIBENZOR [Concomitant]
     Active Substance: AMLODIPINE BESYLATE\HYDROCHLOROTHIAZIDE\OLMESARTAN MEDOXOMIL
  6. ASPIRIN. [Concomitant]
     Active Substance: ASPIRIN
  7. CLOPIDOGREL [Concomitant]
     Active Substance: CLOPIDOGREL BISULFATE
  8. COREG [Suspect]
     Active Substance: CARVEDILOL
     Indication: ATRIOVENTRICULAR BLOCK
     Dosage: 3.125 MG, TID
     Route: 048
     Dates: start: 2012
  9. XARELTO [Concomitant]
     Active Substance: RIVAROXABAN

REACTIONS (1)
  - Stent placement [Recovered/Resolved]

NARRATIVE: CASE EVENT DATE: 20150601
